FAERS Safety Report 5718732-1 (Version None)
Quarter: 2008Q2

REPORT INFORMATION
  Report Type: 
  Country: None (occurrence: None)
  Receive Date: 20080425
  Receipt Date: 20080414
  Transmission Date: 20081010
  Serious: Yes (Other)
  Sender: FDA-Public Use
  Company Number: US-PFIZER INC-2008033913

PATIENT
  Age: 49 Year
  Sex: Male

DRUGS (3)
  1. GABAPENTIN [Suspect]
  2. LOVASTATIN [Concomitant]
  3. ATENOLOL [Concomitant]

REACTIONS (1)
  - RENAL IMPAIRMENT [None]
